FAERS Safety Report 4374331-8 (Version None)
Quarter: 2004Q2

REPORT INFORMATION
  Report Type: 
  Country: None (occurrence: None)
  Receive Date: 20040608
  Receipt Date: 20040608
  Transmission Date: 20050107
  Serious: No
  Sender: FDA-Public Use
  Company Number: None

PATIENT
  Age: 43 Year
  Sex: Female
  Weight: 76.6579 kg

DRUGS (1)
  1. LEXAPRO [Suspect]
     Indication: GENERALISED ANXIETY DISORDER
     Dosage: 1 DAILY ORAL
     Route: 048
     Dates: start: 20040410, end: 20040607

REACTIONS (5)
  - DRUG WITHDRAWAL SYNDROME [None]
  - FEELING ABNORMAL [None]
  - MOOD SWINGS [None]
  - PERSONALITY CHANGE [None]
  - SUICIDAL IDEATION [None]
